FAERS Safety Report 18505190 (Version 2)
Quarter: 2020Q4

REPORT INFORMATION
  Report Type: Spontaneous
  Country: US (occurrence: US)
  Receive Date: 20201116
  Receipt Date: 20201125
  Transmission Date: 20210114
  Serious: No
  Sender: FDA-Public Use
  Company Number: US-BEH-2020124612

PATIENT
  Age: 63 Year
  Sex: Female

DRUGS (5)
  1. VORICONAZOLE. [Suspect]
     Active Substance: VORICONAZOLE
     Dosage: UNK
     Route: 065
     Dates: start: 20201020
  2. CEPHALEXIN [CEFALEXIN] [Suspect]
     Active Substance: CEPHALEXIN
     Dosage: UNK
     Route: 065
     Dates: start: 202010
  3. TOLTERODINE [Concomitant]
     Active Substance: TOLTERODINE
  4. HIZENTRA [Suspect]
     Active Substance: HUMAN IMMUNOGLOBULIN G
     Indication: IMMUNODEFICIENCY COMMON VARIABLE
     Dosage: 1 GRAM, QD
     Route: 058
     Dates: start: 20200713
  5. TROSPIUM [Concomitant]
     Active Substance: TROSPIUM

REACTIONS (6)
  - Pruritus [Unknown]
  - Dyspnoea [Unknown]
  - Oral pustule [Unknown]
  - Skin exfoliation [Unknown]
  - Mouth ulceration [Unknown]
  - Sunburn [Unknown]

NARRATIVE: CASE EVENT DATE: 20201020
